FAERS Safety Report 18232662 (Version 2)
Quarter: 2020Q3

REPORT INFORMATION
  Report Type: Spontaneous
  Country: JP (occurrence: JP)
  Receive Date: 20200904
  Receipt Date: 20200907
  Transmission Date: 20201103
  Serious: Yes (Hospitalization)
  Sender: FDA-Public Use
  Company Number: JP-009507513-2008JPN002267J

PATIENT
  Age: 81 Year
  Sex: Female
  Weight: 57 kg

DRUGS (13)
  1. TEGRETOL [Concomitant]
     Active Substance: CARBAMAZEPINE
     Dosage: 100 MILLIGRAM/DAY
     Route: 048
  2. CORTRIL [Concomitant]
     Active Substance: HYDROCORTISONE
     Indication: HYPONATRAEMIA
     Dosage: 10 MILLIGRAM/DAY
     Route: 065
     Dates: start: 20200615
  3. SODIUM CHLORIDE. [Concomitant]
     Active Substance: SODIUM CHLORIDE
     Indication: HYPONATRAEMIA
     Dosage: 3 GRAM/DAY
     Route: 065
     Dates: start: 20200615
  4. TAKECAB [Concomitant]
     Active Substance: VONOPRAZAN FUMARATE
     Dosage: 10 MILLIGRAM/DAY
     Route: 048
  5. TAPENTA [Concomitant]
     Active Substance: TAPENTADOL HYDROCHLORIDE
     Dosage: 100 MILLIGRAM/DAY
     Route: 048
  6. SYMPROIC [Concomitant]
     Active Substance: NALDEMEDINE
     Dosage: 0.2 MILLIGRAM/DAY
     Route: 048
  7. TRAMAL [Concomitant]
     Active Substance: TRAMADOL
     Dosage: AS?NEEDED BASIS
     Route: 048
     Dates: end: 20200612
  8. OXINORM [Concomitant]
     Dosage: UNK
     Route: 065
     Dates: start: 20200612
  9. CELECOX [Concomitant]
     Active Substance: CELECOXIB
     Dosage: 400 MILLIGRAM/DAY
     Route: 048
  10. MERCAZOLE [Concomitant]
     Active Substance: CARBIMAZOLE
     Indication: BASEDOW^S DISEASE
     Dosage: 15 MILLIGRAM/DAY
     Route: 065
     Dates: start: 20200608
  11. KEYTRUDA [Suspect]
     Active Substance: PEMBROLIZUMAB
     Indication: MALIGNANT MELANOMA
     Dosage: 200 MILLIGRAM EVERY TIME
     Route: 041
     Dates: start: 20200618, end: 20200618
  12. OPDIVO [Suspect]
     Active Substance: NIVOLUMAB
     Indication: MALIGNANT MELANOMA
     Dosage: 240 MILLIGRAM EVERY TIME
     Route: 042
     Dates: start: 20191226, end: 20200408
  13. YERVOY [Suspect]
     Active Substance: IPILIMUMAB
     Indication: MALIGNANT MELANOMA
     Dosage: 170 MILLIGRAM EVERY TIME
     Route: 042
     Dates: start: 20200416, end: 20200528

REACTIONS (1)
  - Immune-mediated hepatic disorder [Recovering/Resolving]

NARRATIVE: CASE EVENT DATE: 20200625
